FAERS Safety Report 16970448 (Version 1)
Quarter: 2019Q4

REPORT INFORMATION
  Report Type: Spontaneous
  Country: US (occurrence: US)
  Receive Date: 20190912
  Receipt Date: 20190912
  Transmission Date: 20200122
  Serious: No
  Sender: FDA-Public Use
  Company Number: None

PATIENT
  Age: 64 Year
  Sex: Female

DRUGS (5)
  1. NORVASC [Concomitant]
     Active Substance: AMLODIPINE BESYLATE
  2. GABAPENTIN. [Concomitant]
     Active Substance: GABAPENTIN
  3. AUSTEDO [Suspect]
     Active Substance: DEUTETRABENAZINE
     Indication: DYSTONIA
     Route: 048
     Dates: start: 20190516
  4. KLONOPIN [Concomitant]
     Active Substance: CLONAZEPAM
  5. TRAZODONE [Concomitant]
     Active Substance: TRAZODONE HYDROCHLORIDE

REACTIONS (1)
  - Oromandibular dystonia [None]

NARRATIVE: CASE EVENT DATE: 20190823
